FAERS Safety Report 7141063-2 (Version None)
Quarter: 2010Q4

REPORT INFORMATION
  Report Type: 
  Country: None (occurrence: None)
  Receive Date: 20101201
  Receipt Date: 20101201
  Transmission Date: 20110411
  Serious: Yes (Hospitalization)
  Sender: FDA-Public Use
  Company Number: None

PATIENT
  Sex: Female
  Weight: 54.6 kg

DRUGS (2)
  1. CARBOPLATIN [Suspect]
     Dosage: 760 MG
     Dates: end: 20101119
  2. TAXOL [Suspect]
     Dosage: 390 MG
     Dates: end: 20101122

REACTIONS (4)
  - ABDOMINAL DISTENSION [None]
  - ABDOMINAL PAIN [None]
  - ASCITES [None]
  - DYSPNOEA [None]
